FAERS Safety Report 7101305-6 (Version None)
Quarter: 2010Q4

REPORT INFORMATION
  Report Type: 
  Country: None (occurrence: None)
  Receive Date: 20101105
  Receipt Date: 20101020
  Transmission Date: 20110411
  Serious: Yes (Death, Hospitalization)
  Sender: FDA-Public Use
  Company Number: 2010004630

PATIENT
  Age: 45 Year
  Sex: Male

DRUGS (4)
  1. ERLOTINIB HYDROCHLORIDE [Suspect]
     Indication: LUNG NEOPLASM MALIGNANT
     Dosage: (150 MG, QD), ORAL
     Route: 048
     Dates: start: 20100817, end: 20101006
  2. PERCOCET [Concomitant]
  3. MINOCYCLINE HCL [Concomitant]
  4. CLINDAMYCIN [Concomitant]

REACTIONS (13)
  - ASTHENIA [None]
  - BLOOD PRESSURE SYSTOLIC DECREASED [None]
  - CARDIAC ARREST [None]
  - CARDIAC TAMPONADE [None]
  - COUGH [None]
  - DECREASED APPETITE [None]
  - DEEP VEIN THROMBOSIS [None]
  - LUNG CANCER METASTATIC [None]
  - MUSCULAR WEAKNESS [None]
  - PERICARDIAL EFFUSION [None]
  - RASH [None]
  - RHINORRHOEA [None]
  - WEIGHT DECREASED [None]
